FAERS Safety Report 11625918 (Version 2)
Quarter: 2015Q4

REPORT INFORMATION
  Report Type: Report from Study
  Country: TW (occurrence: TW)
  Receive Date: 20151013
  Receipt Date: 20151015
  Transmission Date: 20160304
  Serious: Yes (Hospitalization)
  Sender: FDA-Public Use
  Company Number: TW-SA-2015SA153285

PATIENT
  Age: 70 Year
  Sex: Male
  Weight: 64 kg

DRUGS (16)
  1. ACETYLSALICYLIC ACID/CLOPIDOGREL BISULFATE [Suspect]
     Active Substance: ASPIRIN\CLOPIDOGREL BISULFATE
     Indication: ACUTE CORONARY SYNDROME
     Route: 065
     Dates: start: 20150905
  2. EPHEDRINE. [Concomitant]
     Active Substance: EPHEDRINE
     Dosage: ST DOSE:40 MILLIGRAM(S)/MILLILITRE
  3. FENTANYL. [Concomitant]
     Active Substance: FENTANYL
     Dosage: 0.05 MG/ML; 2 ML/AMP ST
  4. LIDOCAINE. [Concomitant]
     Active Substance: LIDOCAINE
     Dosage: 2%, 5 ML ST
  5. ACETAMINOPHEN. [Concomitant]
     Active Substance: ACETAMINOPHEN
  6. MAGNESIUM OXIDE. [Concomitant]
     Active Substance: MAGNESIUM OXIDE
  7. CLOPIDOGREL BISULFATE. [Suspect]
     Active Substance: CLOPIDOGREL BISULFATE
     Indication: ACUTE CORONARY SYNDROME
     Route: 065
     Dates: start: 20150902
  8. NALBUPHINE [Concomitant]
     Active Substance: NALBUPHINE
     Dosage: 10 MG/ML, 1 ML Q6H
  9. SEVOFLURANE. [Concomitant]
     Active Substance: SEVOFLURANE
     Dosage: ST
  10. TAMSULOSIN [Concomitant]
     Active Substance: TAMSULOSIN
  11. PROPOFOL. [Concomitant]
     Active Substance: PROPOFOL
     Dosage: ST DOSE:200 MILLIGRAM(S)/MILLILITRE
  12. GRANISETRON [Concomitant]
     Active Substance: GRANISETRON
     Dosage: ST
  13. ASPIRIN. [Suspect]
     Active Substance: ASPIRIN
     Indication: ACUTE CORONARY SYNDROME
     Route: 065
     Dates: start: 20150823
  14. SALINE ORAL OTC [Concomitant]
     Active Substance: SODIUM CHLORIDE
     Dosage: 0.9% SOLUTION ST
  15. PIPEMIDIC ACID [Concomitant]
     Active Substance: PIPEMIDIC ACID
  16. CEFAZOLIN [Concomitant]
     Active Substance: CEFAZOLIN

REACTIONS (1)
  - Calculus bladder [Recovered/Resolved]

NARRATIVE: CASE EVENT DATE: 20150913
